FAERS Safety Report 15368217 (Version 2)
Quarter: 2018Q4

REPORT INFORMATION
  Report Type: Report from Study
  Country: None (occurrence: IL)
  Receive Date: 20180910
  Receipt Date: 20181015
  Transmission Date: 20190204
  Serious: Yes (Hospitalization)
  Sender: FDA-Public Use
  Company Number: IL-ABBVIE-18P-082-2474066-00

PATIENT
  Age: 74 Year
  Sex: Female
  Weight: 57 kg

DRUGS (62)
  1. TAVANIC [Concomitant]
     Active Substance: LEVOFLOXACIN
     Indication: CELLULITIS
     Route: 048
     Dates: start: 20180520
  2. POW MAGNESIUM [Concomitant]
     Indication: HYPOMAGNESAEMIA
     Route: 048
     Dates: start: 20180517
  3. FUSID [FUROSEMIDE] [Concomitant]
     Active Substance: FUROSEMIDE
     Indication: RENAL FAILURE
     Route: 042
     Dates: start: 20180523
  4. CLEXANE [Concomitant]
     Active Substance: ENOXAPARIN SODIUM
     Indication: AORTIC VALVE REPLACEMENT
     Route: 058
     Dates: start: 20180508
  5. NEXIUM [Concomitant]
     Active Substance: ESOMEPRAZOLE MAGNESIUM
     Indication: NAUSEA
     Route: 048
     Dates: start: 20180801, end: 20180917
  6. SIRAN [Concomitant]
     Indication: DYSPNOEA
     Route: 048
     Dates: start: 20180803, end: 20180813
  7. VENTOLIN [Concomitant]
     Active Substance: ALBUTEROL SULFATE
     Indication: DYSPNOEA
     Route: 055
     Dates: start: 20180803, end: 20180810
  8. NORMAL SALINE SOLUTION (0.9% SODIUM CHLORIDE) [Concomitant]
     Indication: PROPHYLAXIS
     Route: 017
     Dates: start: 20180516, end: 20180521
  9. TAZOCIN [Concomitant]
     Active Substance: PIPERACILLIN SODIUM\TAZOBACTAM SODIUM
     Indication: CELLULITIS
     Route: 042
     Dates: start: 20180801, end: 20180810
  10. RESPRIM [Concomitant]
     Active Substance: SULFAMETHOXAZOLE\TRIMETHOPRIM
     Indication: ANTIBIOTIC PROPHYLAXIS
     Route: 048
     Dates: start: 20180524
  11. ELTROXIN [Concomitant]
     Active Substance: LEVOTHYROXINE
     Indication: HYPOTHYROIDISM
     Route: 048
     Dates: start: 201405
  12. LIPITOR [Concomitant]
     Active Substance: ATORVASTATIN CALCIUM
     Indication: HYPERCHOLESTEROLAEMIA
     Route: 048
     Dates: start: 20140701
  13. VORICONAZOLE. [Concomitant]
     Active Substance: VORICONAZOLE
     Indication: ASPERGILLUS INFECTION
     Route: 048
     Dates: start: 20180614, end: 20180802
  14. VASODIP [Concomitant]
     Active Substance: LERCANIDIPINE HYDROCHLORIDE
     Indication: HYPERTENSION
     Route: 048
     Dates: start: 20180818, end: 20180821
  15. VENOFER [Concomitant]
     Active Substance: IRON SUCROSE
     Indication: ANAEMIA
     Route: 042
     Dates: start: 20180821, end: 20180821
  16. PERCOCET [Concomitant]
     Active Substance: ACETAMINOPHEN\OXYCODONE HYDROCHLORIDE
     Indication: HAEMORRHOIDS
     Route: 048
     Dates: start: 20180829, end: 20180829
  17. AVILAC [Concomitant]
     Indication: HAEMORRHOIDS
     Route: 048
     Dates: start: 20180830, end: 20180909
  18. FLEET ENEMA [Concomitant]
     Active Substance: SODIUM PHOSPHATE, DIBASIC\SODIUM PHOSPHATE, MONOBASIC
     Indication: HAEMORRHOIDS
     Route: 054
     Dates: start: 20180903, end: 20180903
  19. VENETOCLAX. [Suspect]
     Active Substance: VENETOCLAX
     Indication: ACUTE MYELOID LEUKAEMIA
     Dosage: DAYS 1  28 OF 28 DAY CYCLE
     Route: 048
     Dates: start: 20180517, end: 20180517
  20. VENETOCLAX. [Suspect]
     Active Substance: VENETOCLAX
     Dosage: DAYS 1  28 OF 28 DAY CYCLE
     Route: 048
     Dates: start: 20180519, end: 20180521
  21. VENETOCLAX. [Suspect]
     Active Substance: VENETOCLAX
     Dosage: DAYS 1  28 OF 28 DAY CYCLE
     Route: 048
     Dates: start: 20180522, end: 20180525
  22. VENETOCLAX. [Suspect]
     Active Substance: VENETOCLAX
     Dosage: DAYS 1  28 OF 28 DAY CYCLE
     Route: 048
     Dates: start: 20180528, end: 20180613
  23. VENETOCLAX. [Suspect]
     Active Substance: VENETOCLAX
     Dosage: DAYS 1  28 OF 28 DAY CYCLE
     Route: 048
     Dates: start: 20180614, end: 20180729
  24. ALLOPURINOL. [Concomitant]
     Active Substance: ALLOPURINOL
     Indication: PROPHYLAXIS
     Route: 048
     Dates: start: 20180517, end: 20180521
  25. TAZOCIN [Concomitant]
     Active Substance: PIPERACILLIN SODIUM\TAZOBACTAM SODIUM
     Route: 042
     Dates: start: 20180522, end: 20180614
  26. ACAMOL [Concomitant]
     Active Substance: ACETAMINOPHEN
     Indication: PYREXIA
     Route: 048
     Dates: start: 20180522
  27. ACAMOL [Concomitant]
     Active Substance: ACETAMINOPHEN
     Indication: SEPSIS
     Route: 048
     Dates: start: 20180803, end: 20180913
  28. A-HYDROCORT [Concomitant]
     Active Substance: HYDROCORTISONE SODIUM SUCCINATE
     Indication: DYSPNOEA
     Route: 042
     Dates: start: 20180804, end: 20180809
  29. SLOW K [Concomitant]
     Active Substance: POTASSIUM CHLORIDE
     Indication: HYPOKALAEMIA
     Route: 048
     Dates: start: 20180810, end: 20180813
  30. HEPARIN [Concomitant]
     Active Substance: HEPARIN SODIUM
     Indication: AORTIC VALVE REPLACEMENT
     Route: 042
     Dates: start: 20180813, end: 20180818
  31. MEROPENEM. [Concomitant]
     Active Substance: MEROPENEM
     Indication: SEPSIS
     Route: 042
     Dates: start: 20180817, end: 20180819
  32. VENETOCLAX. [Suspect]
     Active Substance: VENETOCLAX
     Dosage: DAYS 1  28 OF 28 DAY CYCLE
     Route: 048
     Dates: start: 20180829, end: 20180901
  33. VABEN [Concomitant]
     Active Substance: OXAZEPAM
     Indication: ANXIETY
     Route: 048
     Dates: start: 20150209
  34. NEUPOGEN [Concomitant]
     Active Substance: FILGRASTIM
     Indication: NEUTROPENIA
     Route: 058
     Dates: start: 20180730, end: 20180917
  35. CALCILESS [Concomitant]
     Indication: HYPERBILIRUBINAEMIA
     Route: 048
     Dates: start: 20180805, end: 20180908
  36. CIPROGIS [Concomitant]
     Indication: SEPSIS
     Route: 042
     Dates: start: 20180819, end: 20180826
  37. VENETOCLAX. [Suspect]
     Active Substance: VENETOCLAX
     Dosage: DAYS 1  28 OF 28 DAY CYCLE
     Route: 048
     Dates: start: 20180518, end: 20180518
  38. VENETOCLAX. [Suspect]
     Active Substance: VENETOCLAX
     Dosage: DAYS 1  28 OF 28 DAY CYCLE
     Route: 048
     Dates: start: 20180526, end: 20180526
  39. FUSID [FUROSEMIDE] [Concomitant]
     Active Substance: FUROSEMIDE
     Indication: DYSPNOEA
     Route: 042
     Dates: start: 20180807, end: 20180917
  40. VITAMIN D [Concomitant]
     Active Substance: CHOLECALCIFEROL
     Indication: VITAMIN D DEFICIENCY
     Route: 048
     Dates: start: 20180418
  41. PREDNISONE. [Concomitant]
     Active Substance: PREDNISONE
     Indication: DYSPNOEA
     Route: 048
     Dates: start: 20180809, end: 20180916
  42. REOLIN [Concomitant]
     Indication: DYSPNOEA
     Route: 048
     Dates: start: 20180901, end: 20180901
  43. BONDORMIN [Concomitant]
     Active Substance: BROTIZOLAM
     Indication: INSOMNIA
     Route: 048
     Dates: start: 20180517
  44. LAXADIN [Concomitant]
     Active Substance: BISACODYL
     Indication: CONSTIPATION
     Dates: start: 20180517
  45. A-HYDROCORT [Concomitant]
     Active Substance: HYDROCORTISONE SODIUM SUCCINATE
     Route: 042
     Dates: start: 20180821, end: 20180822
  46. PROCTO GLYVENOL [Concomitant]
     Indication: HAEMORRHOIDS
     Route: 061
     Dates: start: 20180826, end: 20180917
  47. LYRICA [Concomitant]
     Active Substance: PREGABALIN
     Indication: ANXIETY
     Route: 048
     Dates: start: 20180831, end: 20180917
  48. AZACITIDINE. [Suspect]
     Active Substance: AZACITIDINE
     Indication: ACUTE MYELOID LEUKAEMIA
     Dosage: DAY 1-7 OF EACH 28-DAY CYCLE
     Route: 058
     Dates: start: 20180517, end: 20180901
  49. CALCIUM SANDOZ [Concomitant]
     Active Substance: CALCIUM
     Indication: HYPOCALCAEMIA
     Route: 048
     Dates: start: 20180415
  50. COUMADIN [Concomitant]
     Active Substance: WARFARIN SODIUM
     Indication: AORTIC VALVE REPLACEMENT
     Route: 048
     Dates: start: 20180614
  51. AEROVENT [Concomitant]
     Indication: DYSPNOEA
     Route: 055
     Dates: start: 20180802, end: 20180917
  52. TRITACE [Concomitant]
     Active Substance: RAMIPRIL
     Indication: HYPERTENSION
     Route: 048
     Dates: start: 20180805, end: 20180813
  53. SOLU-MEDROL [Concomitant]
     Active Substance: METHYLPREDNISOLONE SODIUM SUCCINATE
     Indication: DYSPNOEA
     Route: 042
     Dates: start: 20180812, end: 20180812
  54. LAXADIN [Concomitant]
     Active Substance: BISACODYL
     Indication: HAEMORRHOIDS
     Route: 048
     Dates: start: 20180829, end: 20180917
  55. VENTOLIN [Concomitant]
     Active Substance: ALBUTEROL SULFATE
     Indication: DYSPNOEA
     Route: 055
     Dates: start: 20180901, end: 20180904
  56. GLYCERINE [Concomitant]
     Active Substance: GLYCERIN
     Indication: HAEMORRHOIDS
     Route: 054
     Dates: start: 20180906, end: 20180906
  57. SPASMEX [Concomitant]
     Indication: RENAL FAILURE
     Route: 048
     Dates: start: 20180517
  58. FUSID [FUROSEMIDE] [Concomitant]
     Active Substance: FUROSEMIDE
     Route: 042
     Dates: start: 20180817, end: 20180817
  59. LOSARTAN POTASSIUM AND HYDROCHLOROTHIAZIDE [Concomitant]
     Active Substance: HYDROCHLOROTHIAZIDE\LOSARTAN POTASSIUM
     Indication: HYPERTENSION
     Route: 048
     Dates: start: 20170912
  60. FOLIC ACID. [Concomitant]
     Active Substance: FOLIC ACID
     Indication: FOLATE DEFICIENCY
     Route: 048
     Dates: start: 20170219
  61. NORMALAX [Concomitant]
     Indication: CONSTIPATION
     Route: 048
     Dates: start: 20170512
  62. VORICONAZOLE. [Concomitant]
     Active Substance: VORICONAZOLE
     Indication: ASPERGILLUS INFECTION
     Route: 048
     Dates: start: 20180808, end: 20180917

REACTIONS (1)
  - Soft tissue haemorrhage [Recovered/Resolved]

NARRATIVE: CASE EVENT DATE: 20180901
